FAERS Safety Report 9180087 (Version 8)
Quarter: 2014Q4

REPORT INFORMATION
  Report Type: Spontaneous
  Country: US (occurrence: US)
  Receive Date: 20130321
  Receipt Date: 20141006
  Transmission Date: 20150529
  Serious: Yes (Hospitalization, Disabling, Other)
  Sender: FDA-Public Use
  Company Number: US-009507513-1303USA009648

PATIENT
  Sex: Female

DRUGS (6)
  1. FOSAMAX [Suspect]
     Active Substance: ALENDRONATE SODIUM
     Indication: OSTEOPOROSIS
     Dosage: 70 MG, QW
     Route: 048
     Dates: start: 20020817, end: 20080327
  2. EVISTA [Concomitant]
     Active Substance: RALOXIFENE HYDROCHLORIDE
     Indication: PROPHYLAXIS
     Dosage: UNK
     Dates: start: 1995
  3. ALENDRONATE SODIUM. [Suspect]
     Active Substance: ALENDRONATE SODIUM
     Indication: OSTEOPOROSIS
     Dosage: 70 MG, QW
     Route: 048
     Dates: start: 20080328, end: 20110122
  4. VITAMINS (UNSPECIFIED) [Concomitant]
     Active Substance: VITAMINS
     Dosage: UNK, QD
     Dates: start: 1990
  5. CALCIUM (UNSPECIFIED) [Concomitant]
     Active Substance: CALCIUM
     Dosage: 600 MG, UNK
     Dates: start: 1990
  6. VITAMIN D [Concomitant]
     Active Substance: CHOLECALCIFEROL
     Dosage: UNK, QD
     Dates: start: 1990

REACTIONS (24)
  - Urinary tract infection [Unknown]
  - Low turnover osteopathy [Not Recovered/Not Resolved]
  - Hysterectomy [Unknown]
  - Sinus tachycardia [Unknown]
  - Osteopenia [Unknown]
  - Femur fracture [Not Recovered/Not Resolved]
  - Haemoglobin decreased [Unknown]
  - Migraine [Not Recovered/Not Resolved]
  - Pulmonary fibrosis [Unknown]
  - Articular calcification [Unknown]
  - Cholecystectomy [Unknown]
  - Anxiety [Unknown]
  - Spinal osteoarthritis [Unknown]
  - Gastrooesophageal reflux disease [Unknown]
  - Intramedullary rod insertion [Unknown]
  - Intramedullary rod insertion [Unknown]
  - Anaemia postoperative [Unknown]
  - Procedural hypotension [Recovered/Resolved]
  - Left ventricular hypertrophy [Unknown]
  - Electrocardiogram ST segment depression [Unknown]
  - Enthesopathy [Unknown]
  - Femur fracture [Not Recovered/Not Resolved]
  - Cardiac murmur [Unknown]
  - Arthritis [Unknown]

NARRATIVE: CASE EVENT DATE: 20070122
